FAERS Safety Report 7332416-8 (Version None)
Quarter: 2011Q1

REPORT INFORMATION
  Report Type: 
  Country: None (occurrence: None)
  Receive Date: 20110304
  Receipt Date: 20110228
  Transmission Date: 20110831
  Serious: Yes (Death, Life-Threatening, Other)
  Sender: FDA-Public Use
  Company Number: DE-ASTRAZENECA-2011SE11117

PATIENT
  Age: 84 Year
  Sex: Male
  Weight: 65 kg

DRUGS (11)
  1. TOREM [Concomitant]
     Dates: end: 20100212
  2. LYRICA [Suspect]
     Route: 048
     Dates: start: 20100111, end: 20100213
  3. CLEXANE [Concomitant]
     Dosage: 1 AMPOULE
     Route: 058
     Dates: start: 20100210, end: 20110216
  4. FENTANYL [Suspect]
     Dates: start: 20100212, end: 20100213
  5. LORZAAR [Concomitant]
     Dates: end: 20100212
  6. FENTANYL [Suspect]
     Dates: end: 20100211
  7. FENTANYL [Suspect]
     Dates: start: 20100214, end: 20110216
  8. SEROQUEL [Suspect]
     Indication: VASCULAR DEMENTIA
     Route: 048
     Dates: start: 20100210, end: 20100212
  9. HALDOL [Suspect]
     Route: 042
     Dates: start: 20100215, end: 20110216
  10. FUROSEMIDE [Concomitant]
     Route: 048
     Dates: start: 20100213, end: 20110216
  11. JONOSTERIL [Concomitant]
     Route: 042
     Dates: start: 20100213, end: 20110216

REACTIONS (8)
  - BLOOD PRESSURE DECREASED [None]
  - CHILLS [None]
  - INCREASED BRONCHIAL SECRETION [None]
  - PAIN IN EXTREMITY [None]
  - BEDRIDDEN [None]
  - DEATH [None]
  - GENERAL PHYSICAL HEALTH DETERIORATION [None]
  - CYANOSIS [None]
